FAERS Safety Report 23735457 (Version 1)
Quarter: 2024Q2

REPORT INFORMATION
  Report Type: Spontaneous
  Country: US (occurrence: None)
  Receive Date: 20240411
  Receipt Date: 20240411
  Transmission Date: 20240716
  Serious: No
  Sender: FDA-Public Use
  Company Number: None

PATIENT
  Age: 92 Year
  Sex: Male

DRUGS (2)
  1. ABIRATERONE [Suspect]
     Active Substance: ABIRATERONE
     Indication: Bone cancer
     Dosage: FREQUENCY : DAILY;?
  2. ABIRATERONE [Suspect]
     Active Substance: ABIRATERONE
     Indication: Metastasis

REACTIONS (1)
  - Death [None]
